FAERS Safety Report 4489263-4 (Version None)
Quarter: 2004Q4

REPORT INFORMATION
  Report Type: 
  Country: None (occurrence: None)
  Receive Date: 20041026
  Receipt Date: 20040923
  Transmission Date: 20050328
  Serious: No
  Sender: FDA-Public Use
  Company Number: B01200401778

PATIENT
  Age: 63 Year
  Sex: Male

DRUGS (6)
  1. OXALIPLATIN [Suspect]
     Indication: COLORECTAL CANCER
     Dosage: 85 MG/M2 Q2W (CUMULATIVE DOSE:  840 MG) INTRAVENOUS NOS
     Route: 042
     Dates: start: 20040401, end: 20040402
  2. OXALIPLATIN [Suspect]
     Indication: METASTASES TO LIVER
     Dosage: 85 MG/M2 Q2W (CUMULATIVE DOSE:  840 MG) INTRAVENOUS NOS
     Route: 042
     Dates: start: 20040401, end: 20040402
  3. FLUOROURACIL [Suspect]
     Dosage: 400 MG/M2 BOLUS THEN 600 MG/M2 22 HOUR CONTINUOUS INFUSION ON D1 AND D2 Q2W (CUMULATIVE DOSE:  19100
     Route: 042
     Dates: start: 20040401, end: 20040402
  4. LEUCOVORIN [Suspect]
     Dosage: 200 MG/M2 Q2W (CUMULATIVE DOSE:  4300 MG) INTRAVENOUS NOS
     Route: 042
     Dates: start: 20040401, end: 20040401
  5. NAVOBAN          (TROPISETRON HCL) [Concomitant]
  6. DEXAMETHASONE [Concomitant]

REACTIONS (4)
  - GALLBLADDER CHOLESTEROLOSIS [None]
  - HEPATIC CIRRHOSIS [None]
  - HEPATOCELLULAR DAMAGE [None]
  - NODULAR REGENERATIVE HYPERPLASIA [None]
